FAERS Safety Report 9305594 (Version 1)
Quarter: 2013Q2

REPORT INFORMATION
  Report Type: Spontaneous
  Country: US (occurrence: US)
  Receive Date: 20130523
  Receipt Date: 20130523
  Transmission Date: 20140414
  Serious: Yes (Other)
  Sender: FDA-Public Use
  Company Number: US-ASTRAZENECA-2013SE34407

PATIENT
  Age: 76 Year
  Sex: Male

DRUGS (3)
  1. BRILINTA [Suspect]
     Indication: STENT PLACEMENT
     Dosage: 180 MG LOADING DOSE
     Route: 048
     Dates: start: 20130509
  2. BRILINTA [Suspect]
     Indication: STENT PLACEMENT
     Route: 048
     Dates: start: 20130510
  3. UNKNOWN MEDICATION [Concomitant]
     Dates: start: 20130510

REACTIONS (1)
  - Device occlusion [Unknown]
